FAERS Safety Report 10393772 (Version 5)
Quarter: 2015Q2

REPORT INFORMATION
  Report Type: Spontaneous
  Country: US (occurrence: None)
  Receive Date: 20140815
  Receipt Date: 20150506
  Transmission Date: 20150821
  Serious: Yes (Other)
  Sender: FDA-Public Use
  Company Number: ADR-2014-01427

PATIENT
  Age: 30 Year
  Sex: Male

DRUGS (2)
  1. GENERIC (UNSPECIFIED) MEDICATION [Suspect]
     Active Substance: UNSPECIFIED INGREDIENT
  2. LIORESAL [Suspect]
     Active Substance: BACLOFEN
     Indication: MUSCLE SPASTICITY
     Dosage: 10 MG X 60, 10 PER DAY
     Dates: start: 2003, end: 20140516

REACTIONS (8)
  - Mobility decreased [None]
  - Dyspnoea [None]
  - Musculoskeletal stiffness [None]
  - Choking [None]
  - Product substitution issue [None]
  - Heart rate increased [None]
  - Agitation [None]
  - Dysphagia [None]
